FAERS Safety Report 21302302 (Version 1)
Quarter: 2022Q3

REPORT INFORMATION
  Report Type: Spontaneous
  Country: US (occurrence: None)
  Receive Date: 20220906
  Receipt Date: 20220906
  Transmission Date: 20221027
  Serious: Yes (Hospitalization)
  Sender: FDA-Public Use
  Company Number: None

PATIENT
  Age: 37 Year
  Sex: Female

DRUGS (3)
  1. MINOXIDIL [Suspect]
     Active Substance: MINOXIDIL
     Indication: Alopecia
     Dosage: 450M,G DAILY ORAL
     Route: 048
     Dates: start: 20220831, end: 20220831
  2. ALBUTEROL [Concomitant]
     Active Substance: ALBUTEROL
  3. SALMETEROL [Concomitant]
     Active Substance: SALMETEROL

REACTIONS (8)
  - Product preparation error [None]
  - Accidental overdose [None]
  - Nausea [None]
  - Vomiting [None]
  - Hypotension [None]
  - Tachycardia [None]
  - Troponin increased [None]
  - Electrocardiogram T wave inversion [None]

NARRATIVE: CASE EVENT DATE: 20220901
